FAERS Safety Report 4612111-6 (Version None)
Quarter: 2005Q2

REPORT INFORMATION
  Report Type: 
  Country: None (occurrence: None)
  Receive Date: 20050308
  Receipt Date: 20041221
  Transmission Date: 20051028
  Serious: Yes (Other)
  Sender: FDA-Public Use
  Company Number: 2004UW25989

PATIENT
  Age: 59 Year
  Sex: Female
  Weight: 63.5036 kg

DRUGS (8)
  1. CRESTOR [Suspect]
     Indication: BLOOD CHOLESTEROL INCREASED
     Dosage: 10 MG DAILY PO
     Route: 048
     Dates: start: 20040501, end: 20041201
  2. FISH OIL [Concomitant]
  3. EVISTA [Concomitant]
  4. VALIUM [Concomitant]
  5. TYLENOL (CAPLET) [Concomitant]
  6. IBUPROFEN [Concomitant]
  7. MULTI-VITAMINS [Concomitant]
  8. ANTACID TAB [Concomitant]

REACTIONS (6)
  - ASTHENIA [None]
  - BACK PAIN [None]
  - FATIGUE [None]
  - MYALGIA [None]
  - PYREXIA [None]
  - SENSATION OF HEAVINESS [None]
